FAERS Safety Report 19787167 (Version 1)
Quarter: 2021Q3

REPORT INFORMATION
  Report Type: Spontaneous
  Country: JP (occurrence: JP)
  Receive Date: 20210903
  Receipt Date: 20210903
  Transmission Date: 20211014
  Serious: Yes (Hospitalization)
  Sender: FDA-Public Use
  Company Number: JP-ALLERGAN-2130949US

PATIENT
  Sex: Female

DRUGS (2)
  1. MEMANTINE HCL ? BP [Suspect]
     Active Substance: MEMANTINE
     Dosage: 25 MG, QD
     Route: 048
     Dates: start: 20210816
  2. MEMANTINE HCL ? BP [Suspect]
     Active Substance: MEMANTINE
     Indication: PRODUCT USED FOR UNKNOWN INDICATION
     Dosage: 15 MG, QD
     Route: 048
     Dates: start: 20210823

REACTIONS (5)
  - Accidental overdose [Unknown]
  - Depressed level of consciousness [Not Recovered/Not Resolved]
  - Dizziness [Not Recovered/Not Resolved]
  - Lung neoplasm malignant [Unknown]
  - Malaise [Not Recovered/Not Resolved]
